FAERS Safety Report 20651015 (Version 4)
Quarter: 2023Q1

REPORT INFORMATION
  Report Type: Report from Study
  Country: US (occurrence: US)
  Receive Date: 20220329
  Receipt Date: 20230316
  Transmission Date: 20230418
  Serious: Yes (Other)
  Sender: FDA-Public Use
  Company Number: US-TAKEDA-2021TUS040973

PATIENT
  Age: 44 Year
  Sex: Male

DRUGS (1)
  1. RECOMBINATE [Suspect]
     Active Substance: ANTIHEMOPHILIC FACTOR, HUMAN RECOMBINANT
     Indication: Haemorrhage
     Dosage: 2400 INTERNATIONAL UNIT
     Route: 042
     Dates: end: 20220305

REACTIONS (6)
  - Haemorrhoids [Unknown]
  - Haemarthrosis [Recovered/Resolved]
  - Spontaneous haemorrhage [Recovered/Resolved]
  - Musculoskeletal discomfort [Recovered/Resolved]
  - Tooth disorder [Unknown]
  - Swelling [Unknown]

NARRATIVE: CASE EVENT DATE: 20210625
